FAERS Safety Report 10924155 (Version 1)
Quarter: 2015Q1

REPORT INFORMATION
  Report Type: Spontaneous
  Country: US (occurrence: None)
  Receive Date: 20150129
  Receipt Date: 20150129
  Transmission Date: 20150721
  Serious: Yes (Other)
  Sender: FDA-Public Use
  Company Number: 2014006947

PATIENT

DRUGS (6)
  1. VIMPAT [Suspect]
     Active Substance: LACOSAMIDE
  2. KEPPRA [Suspect]
     Active Substance: LEVETIRACETAM
  3. TOPAMAX [Concomitant]
     Active Substance: TOPIRAMATE
  4. TEGRETOL [Suspect]
     Active Substance: CARBAMAZEPINE
     Dates: start: 2010
  5. DILANTIN (PHENYTOIN SODIUM) [Concomitant]
     Active Substance: PHENYTOIN SODIUM
  6. ATIVAN [Concomitant]
     Active Substance: LORAZEPAM

REACTIONS (7)
  - Complex partial seizures [None]
  - Generalised tonic-clonic seizure [None]
  - Overdose [None]
  - Drug hypersensitivity [None]
  - Simple partial seizures [None]
  - Suicidal ideation [None]
  - Depression [None]

NARRATIVE: CASE EVENT DATE: 2010
